FAERS Safety Report 9458210 (Version 2)
Quarter: 2013Q3

REPORT INFORMATION
  Report Type: Spontaneous
  Country: PE (occurrence: PE)
  Receive Date: 20130814
  Receipt Date: 20130823
  Transmission Date: 20140515
  Serious: Yes (Hospitalization)
  Sender: FDA-Public Use
  Company Number: PE-PFIZER INC-2013234455

PATIENT
  Age: 65 Year
  Sex: Male

DRUGS (1)
  1. LYRICA [Suspect]
     Indication: DIABETIC NEUROPATHY
     Dosage: 150 MG, UNK
     Route: 048
     Dates: start: 201305, end: 201307

REACTIONS (2)
  - Diabetic foot [Not Recovered/Not Resolved]
  - Extremity necrosis [Not Recovered/Not Resolved]
